FAERS Safety Report 8891218 (Version 9)
Quarter: 2014Q1

REPORT INFORMATION
  Report Type: Spontaneous
  Country: US (occurrence: US)
  Receive Date: 20121107
  Receipt Date: 20140121
  Transmission Date: 20141002
  Serious: Yes (Hospitalization, Disabling, Other)
  Sender: FDA-Public Use
  Company Number: US-009507513-1211USA002192

PATIENT
  Sex: Female

DRUGS (3)
  1. FOSAMAX [Suspect]
     Indication: OSTEOPOROSIS
     Dosage: 70 MG, QW
     Route: 048
  2. ALENDRONATE SODIUM [Suspect]
     Indication: OSTEOPOROSIS
     Dosage: 70 MG, UNK
     Route: 048
     Dates: start: 200802
  3. ALENDRONATE SODIUM [Suspect]
     Indication: OSTEOPOROSIS PROPHYLAXIS

REACTIONS (36)
  - Femur fracture [Recovered/Resolved]
  - Open reduction of fracture [Recovered/Resolved]
  - Femur fracture [Unknown]
  - Encephalopathy [Recovered/Resolved]
  - Myocardial infarction [Unknown]
  - Femur fracture [Not Recovered/Not Resolved]
  - Coronary artery bypass [Unknown]
  - Myocardial infarction [Unknown]
  - Bone graft [Unknown]
  - Renal failure chronic [Not Recovered/Not Resolved]
  - Cerebrovascular accident [Unknown]
  - Coronary artery bypass [Unknown]
  - Spinal laminectomy [Unknown]
  - Stress fracture [Not Recovered/Not Resolved]
  - Low turnover osteopathy [Not Recovered/Not Resolved]
  - White blood cell count increased [Unknown]
  - Osteoporosis [Not Recovered/Not Resolved]
  - Anaemia [Unknown]
  - Pyrexia [Unknown]
  - Hypertension [Unknown]
  - Hypercholesterolaemia [Unknown]
  - Type 1 diabetes mellitus [Unknown]
  - Lumbar spinal stenosis [Unknown]
  - Anaemia of chronic disease [Not Recovered/Not Resolved]
  - Carpal tunnel decompression [Unknown]
  - Stent placement [Unknown]
  - Coronary artery disease [Unknown]
  - Blepharoplasty [Unknown]
  - Limb operation [Unknown]
  - Benign breast lump removal [Unknown]
  - Spondylolisthesis [Unknown]
  - Arteriosclerosis coronary artery [Unknown]
  - Orthopaedic procedure [Unknown]
  - Arthropathy [Unknown]
  - Cardiac murmur [Unknown]
  - Gastrooesophageal reflux disease [Unknown]
